FAERS Safety Report 7395421-1 (Version None)
Quarter: 2011Q2

REPORT INFORMATION
  Report Type: 
  Country: None (occurrence: None)
  Receive Date: 20110405
  Receipt Date: 20110211
  Transmission Date: 20111010
  Serious: Yes (Other)
  Sender: FDA-Public Use
  Company Number: US-BAYER-201036631NA

PATIENT
  Sex: Female
  Weight: 126 kg

DRUGS (7)
  1. HYDROCHLOROTHIAZIDE [Concomitant]
     Dosage: 25 MG, QD
     Route: 048
  2. ZYRTEC [Concomitant]
     Dosage: 10 MG, QD
     Route: 048
  3. YAZ [Suspect]
     Route: 048
     Dates: start: 20050101, end: 20090707
  4. PHENTERMINE [Concomitant]
     Indication: WEIGHT DECREASED
     Dosage: 37.5 MG, PRN
     Route: 048
  5. YASMIN [Suspect]
     Indication: CONTRACEPTION
     Route: 048
     Dates: start: 20050101, end: 20090707
  6. LORTAB [Concomitant]
     Dosage: 7.5 MG TID, PRN
     Route: 048
  7. VITAMIN D [Concomitant]
     Dosage: 50000 IU, QD
     Route: 048

REACTIONS (7)
  - DIARRHOEA [None]
  - ABDOMINAL PAIN [None]
  - VOMITING [None]
  - GALLBLADDER DISORDER [None]
  - CHOLECYSTITIS [None]
  - CHEST PAIN [None]
  - CHOLELITHIASIS [None]
